FAERS Safety Report 8009274-1 (Version None)
Quarter: 2011Q4

REPORT INFORMATION
  Report Type: 
  Country: None (occurrence: None)
  Receive Date: 20111227
  Receipt Date: 20111219
  Transmission Date: 20120403
  Serious: Yes (Hospitalization, Other)
  Sender: FDA-Public Use
  Company Number: US-ASTRAZENECA-2011SE60275

PATIENT
  Age: 47 Year
  Sex: Female

DRUGS (2)
  1. HERCEPTIN [Concomitant]
     Dosage: VIA PORTA CATH EVERY 3 WEEKS
  2. ARIMIDEX [Suspect]
     Dosage: DAILY
     Route: 048

REACTIONS (3)
  - METASTASES TO LUNG [None]
  - BREAST CANCER STAGE IV [None]
  - BREAST CANCER METASTATIC [None]
